FAERS Safety Report 20733536 (Version 1)
Quarter: 2022Q2

REPORT INFORMATION
  Report Type: Spontaneous
  Country: FR (occurrence: FR)
  Receive Date: 20220421
  Receipt Date: 20220421
  Transmission Date: 20220721
  Serious: Yes (Hospitalization, Other)
  Sender: FDA-Public Use
  Company Number: FR-SUN PHARMACEUTICAL INDUSTRIES LTD-2022RR-333965

PATIENT
  Age: 19 Year
  Sex: Female

DRUGS (5)
  1. ESCITALOPRAM [Suspect]
     Active Substance: ESCITALOPRAM OXALATE
     Indication: Agitation
     Dosage: UNK
     Route: 065
  2. OLANZAPINE [Suspect]
     Active Substance: OLANZAPINE
     Indication: Psychotic disorder
     Dosage: 10 MILLIGRAM, DAILY
     Route: 065
  3. ARIPIPRAZOLE [Suspect]
     Active Substance: ARIPIPRAZOLE
     Indication: Psychotic disorder
     Dosage: 10 MILLIGRAM, UNK
  4. OXAZEPAM [Suspect]
     Active Substance: OXAZEPAM
     Indication: Agitation
     Dosage: UNK
     Route: 065
  5. LOXAPINE [Suspect]
     Active Substance: LOXAPINE
     Indication: Agitation
     Dosage: UNK
     Route: 065

REACTIONS (10)
  - Mania [Recovering/Resolving]
  - Psychomotor hyperactivity [Recovering/Resolving]
  - Irritability [Recovering/Resolving]
  - Affect lability [Recovering/Resolving]
  - Insomnia [Recovering/Resolving]
  - Weight increased [Recovering/Resolving]
  - Binge eating [Recovering/Resolving]
  - Sedation [Recovering/Resolving]
  - Disease recurrence [Recovering/Resolving]
  - Drug ineffective [Unknown]
